FAERS Safety Report 14869101 (Version 1)
Quarter: 2018Q2

REPORT INFORMATION
  Report Type: Report from Study
  Country: BR (occurrence: BR)
  Receive Date: 20180509
  Receipt Date: 20180509
  Transmission Date: 20180711
  Serious: Yes (Other)
  Sender: FDA-Public Use
  Company Number: BR-ROCHE-1676384

PATIENT
  Age: 64 Year
  Sex: Female
  Weight: 55 kg

DRUGS (1)
  1. ACTEMRA [Suspect]
     Active Substance: TOCILIZUMAB
     Indication: RHEUMATOID ARTHRITIS
     Dosage: LAST INFUSION: 24/NOV/2015?LAST INFUSION: 01/APR/2016
     Route: 042
     Dates: start: 20151023

REACTIONS (6)
  - Menopausal symptoms [Unknown]
  - Nasopharyngitis [Recovering/Resolving]
  - Immunodeficiency [Unknown]
  - Nasopharyngitis [Unknown]
  - Finger deformity [Not Recovered/Not Resolved]
  - Foot deformity [Not Recovered/Not Resolved]

NARRATIVE: CASE EVENT DATE: 20151118
